FAERS Safety Report 7149566-1 (Version None)
Quarter: 2010Q4

REPORT INFORMATION
  Report Type: 
  Country: None (occurrence: None)
  Receive Date: 20101209
  Receipt Date: 20101201
  Transmission Date: 20110411
  Serious: Yes (Death)
  Sender: FDA-Public Use
  Company Number: NL-ABBOTT-10P-114-0659949-00

PATIENT
  Sex: Male

DRUGS (14)
  1. LUCRIN DEPOT 11.25 MG [Suspect]
     Indication: PROSTATE CANCER
     Route: 058
     Dates: start: 20060516
  2. CALCIUM CARBONATE/COLICALFICEROL [Concomitant]
     Indication: OSTEOPOROSIS
     Dosage: 1.25G/400IU, 1 TABLET DAILY
     Route: 048
  3. CARBASALATE CALCIUM EFFERVESCENT [Concomitant]
     Indication: ANTICOAGULANT THERAPY
     Route: 048
  4. CYPROTERONE [Concomitant]
     Indication: PROSTATIC DISORDER
     Route: 048
  5. DICLOFENAC SODIUM [Concomitant]
     Indication: ANALGESIC THERAPY
     Route: 048
  6. ENALAPRIL [Concomitant]
     Indication: HYPERTENSION
     Route: 048
  7. IPRATROPIUM BROMIDE [Concomitant]
     Indication: CHRONIC OBSTRUCTIVE PULMONARY DISEASE
     Dosage: 20MCG/DOSE INHALER
     Route: 055
  8. OMEPRAZOLE [Concomitant]
     Indication: PROPHYLAXIS AGAINST GASTROINTESTINAL ULCER
     Route: 048
  9. PAROXETINE HCL [Concomitant]
     Indication: DEPRESSION
     Dosage: AS HCL - 0 WATER, 1 TABLET DAILY
     Route: 048
  10. RISPERIDON [Concomitant]
     Indication: PSYCHOTIC DISORDER
     Route: 048
  11. SALMETEROL/FLUTICASONE POWDER [Concomitant]
     Indication: CHRONIC OBSTRUCTIVE PULMONARY DISEASE
     Dosage: 50/500, AS NEEDED
     Route: 055
  12. HYDROCHLOROTHIAZIDE [Concomitant]
     Indication: DIURETIC THERAPY
     Route: 048
  13. SIMVASTATIN [Concomitant]
     Indication: BLOOD CHOLESTEROL INCREASED
     Route: 048
  14. TOLBUTAMIDE [Concomitant]
     Indication: TYPE 2 DIABETES MELLITUS
     Route: 048

REACTIONS (4)
  - DEATH [None]
  - DEMENTIA ALZHEIMER'S TYPE [None]
  - HOT FLUSH [None]
  - TYPE 2 DIABETES MELLITUS [None]
